FAERS Safety Report 6032910-6 (Version None)
Quarter: 2009Q1

REPORT INFORMATION
  Report Type: 
  Country: None (occurrence: None)
  Receive Date: 20090107
  Receipt Date: 20090107
  Transmission Date: 20090719
  Serious: Yes (Other)
  Sender: FDA-Public Use
  Company Number: None

PATIENT
  Age: 78 Year
  Sex: Female
  Weight: 74.8435 kg

DRUGS (2)
  1. CYMBALTA [Suspect]
     Indication: FIBROMYALGIA
     Dosage: ONE PER DAY PO
     Route: 048
     Dates: start: 20081128, end: 20081203
  2. CYMBALTA [Suspect]
     Indication: TENDONITIS
     Dosage: ONE PER DAY PO
     Route: 048
     Dates: start: 20081128, end: 20081203

REACTIONS (3)
  - ABDOMINAL PAIN [None]
  - ANOREXIA [None]
  - DRUG INTOLERANCE [None]
